FAERS Safety Report 9459216 (Version 2)
Quarter: 2013Q4

REPORT INFORMATION
  Report Type: Report from Study
  Country: US (occurrence: US)
  Receive Date: 20130814
  Receipt Date: 20131007
  Transmission Date: 20140711
  Serious: Yes (Other)
  Sender: FDA-Public Use
  Company Number: US-US-EMD SERONO, INC.-7229445

PATIENT
  Age: 49 Year
  Sex: Female
  Weight: 94 kg

DRUGS (22)
  1. REBIF [Suspect]
     Indication: MULTIPLE SCLEROSIS
     Route: 058
     Dates: start: 20130502, end: 20130913
  2. REBIF [Suspect]
     Route: 058
     Dates: start: 20130913
  3. METOPROLOL TARTRATE [Concomitant]
     Indication: HYPERTENSION
  4. PROTONIX                           /01263201/ [Concomitant]
     Indication: GASTROOESOPHAGEAL REFLUX DISEASE
  5. PLAVIX                             /01220701/ [Concomitant]
     Indication: THROMBOSIS
  6. SIMVASTATIN [Concomitant]
     Indication: BLOOD CHOLESTEROL INCREASED
  7. VENLAFAXINE [Concomitant]
     Indication: DEPRESSION
  8. SUMATRIPTAN [Concomitant]
     Indication: MIGRAINE
  9. ALBUTEROL                          /00139501/ [Concomitant]
     Indication: ASTHMA
  10. NITROGLYCERIN [Concomitant]
     Indication: PRODUCT USED FOR UNKNOWN INDICATION
  11. LYRICA [Concomitant]
     Indication: NEURALGIA
  12. NIFEDICAL [Concomitant]
     Indication: SPINAL COLUMN STENOSIS
  13. CYMBALTA [Concomitant]
     Indication: PRODUCT USED FOR UNKNOWN INDICATION
  14. ZONEGRAN [Concomitant]
     Indication: CONVULSION
  15. LORAZEPAM [Concomitant]
     Indication: ANXIETY
  16. MISOPROSTOL [Concomitant]
     Indication: FAECES HARD
  17. ADVAIR [Concomitant]
     Indication: DYSPNOEA
     Dosage: 250-50
  18. ONDANSETRON [Concomitant]
     Indication: NAUSEA
  19. LASIX                              /00032601/ [Concomitant]
     Indication: FLUID RETENTION
  20. ACETAMINOPHEN W/OXYCODONE [Concomitant]
     Indication: PAIN
     Dosage: 5-325
  21. FLOVENT [Concomitant]
     Indication: ASTHMA
  22. AMBIEN [Concomitant]
     Indication: INSOMNIA

REACTIONS (4)
  - Ovarian cyst ruptured [Unknown]
  - Anaemia [Unknown]
  - Injection site erythema [Not Recovered/Not Resolved]
  - Injection site pruritus [Not Recovered/Not Resolved]
